FAERS Safety Report 9541807 (Version 1)
Quarter: 2013Q3

REPORT INFORMATION
  Report Type: Spontaneous
  Country: US (occurrence: US)
  Receive Date: 20130923
  Receipt Date: 20130923
  Transmission Date: 20140515
  Serious: Yes (Other)
  Sender: FDA-Public Use
  Company Number: US-ELI_LILLY_AND_COMPANY-US201309004039

PATIENT
  Sex: Female

DRUGS (1)
  1. HUMULIN NPH [Suspect]
     Indication: DIABETES MELLITUS
     Dosage: 50 U, BID

REACTIONS (11)
  - Weight increased [Unknown]
  - Blood glucose increased [Unknown]
  - Feeling cold [Unknown]
  - Vomiting [Unknown]
  - Retching [Unknown]
  - Muscular weakness [Unknown]
  - Skin disorder [Unknown]
  - Hypersensitivity [Unknown]
  - Oedema peripheral [Unknown]
  - Injection site bruising [Unknown]
  - Injection site pain [Unknown]
